FAERS Safety Report 16724170 (Version 1)
Quarter: 2019Q3

REPORT INFORMATION
  Report Type: Spontaneous
  Country: US (occurrence: US)
  Receive Date: 20190703
  Receipt Date: 20190703
  Transmission Date: 20191005
  Serious: Yes (Other)
  Sender: FDA-Public Use
  Company Number: None

PATIENT
  Age: 62 Year
  Sex: Female

DRUGS (1)
  1. TEMOZOLOMIDE. [Suspect]
     Active Substance: TEMOZOLOMIDE

REACTIONS (1)
  - Pulmonary pain [None]

NARRATIVE: CASE EVENT DATE: 20180703
